FAERS Safety Report 24542776 (Version 1)
Quarter: 2024Q4

REPORT INFORMATION
  Report Type: Spontaneous
  Country: US (occurrence: US)
  Receive Date: 20241024
  Receipt Date: 20241024
  Transmission Date: 20250114
  Serious: No
  Sender: GLENMARK
  Company Number: US-GLENMARK PHARMACEUTICALS-2024GMK094408

PATIENT

DRUGS (1)
  1. RYALTRIS [Suspect]
     Active Substance: MOMETASONE FUROATE MONOHYDRATE\OLOPATADINE HYDROCHLORIDE
     Indication: Rhinitis allergic
     Dosage: 2 DOSAGE FORM, OD, (INSTILL 2 SPRAYS IN EACH NOSTRIL ONCE DAILY)
     Route: 045
     Dates: start: 20240803

REACTIONS (5)
  - Illness [Unknown]
  - Loss of personal independence in daily activities [Unknown]
  - Adverse drug reaction [Unknown]
  - Dizziness [Unknown]
  - Product use issue [Unknown]
